FAERS Safety Report 8619368-5 (Version None)
Quarter: 2012Q3

REPORT INFORMATION
  Report Type: 
  Country: None (occurrence: None)
  Receive Date: 20120824
  Receipt Date: 20120816
  Transmission Date: 20120928
  Serious: Yes (Hospitalization, Other)
  Sender: FDA-Public Use
  Company Number: US-US-EMD SERONO, INC.-7155464

PATIENT
  Sex: Female

DRUGS (4)
  1. MIRAPEX [Concomitant]
     Indication: RESTLESS LEGS SYNDROME
  2. REBIF [Suspect]
     Indication: PRODUCT USED FOR UNKNOWN INDICATION
     Route: 058
     Dates: start: 20100412
  3. SYNTHROID [Concomitant]
     Indication: THYROID DISORDER
  4. UNKNOWN MEDICATION [Concomitant]
     Indication: HYPERTENSION

REACTIONS (3)
  - PYREXIA [None]
  - NEPHROLITHIASIS [None]
  - CARDIOMYOPATHY [None]
